FAERS Safety Report 6310222-0 (Version None)
Quarter: 2009Q3

REPORT INFORMATION
  Report Type: 
  Country: None (occurrence: None)
  Receive Date: 20090814
  Receipt Date: 20090804
  Transmission Date: 20100115
  Serious: Yes (Other)
  Sender: FDA-Public Use
  Company Number: CI-GILEAD-2009-0023522

PATIENT
  Sex: Female

DRUGS (5)
  1. TRUVADA [Suspect]
     Indication: HIV INFECTION
     Route: 048
     Dates: start: 20080409, end: 20080515
  2. ZIDOVIR [Concomitant]
     Indication: HIV INFECTION
     Route: 048
     Dates: start: 20080409, end: 20080515
  3. BACTRIM [Concomitant]
     Indication: OPPORTUNISTIC INFECTION
     Route: 048
     Dates: start: 20080409
  4. DUOVIR [Concomitant]
     Indication: HIV INFECTION
     Route: 048
     Dates: start: 20080515
  5. ALUVIA [Concomitant]
     Indication: HIV INFECTION
     Route: 048
     Dates: start: 20080515

REACTIONS (1)
  - ABORTION SPONTANEOUS [None]
